FAERS Safety Report 13713607 (Version 2)
Quarter: 2021Q4

REPORT INFORMATION
  Report Type: Spontaneous
  Country: US (occurrence: US)
  Receive Date: 20170704
  Receipt Date: 20211011
  Transmission Date: 20220303
  Serious: Yes (Hospitalization, Other)
  Sender: FDA-Public Use
  Company Number: US-MLMSERVICE-20160530-0298833-1

PATIENT
  Age: 21 Year
  Sex: Male

DRUGS (3)
  1. PIPERACILLIN SODIUM\TAZOBACTAM SODIUM [Suspect]
     Active Substance: PIPERACILLIN SODIUM\TAZOBACTAM SODIUM
     Indication: Oesophageal rupture
  2. HALOPERIDOL [Suspect]
     Active Substance: HALOPERIDOL
     Dosage: 5 MG
     Route: 042
  3. LORAZEPAM [Suspect]
     Active Substance: LORAZEPAM
     Indication: Anxiety

REACTIONS (14)
  - Disorientation [Recovered/Resolved]
  - Flushing [Recovered/Resolved]
  - Feeling hot [Recovered/Resolved]
  - Confusional state [Recovered/Resolved]
  - Speech disorder [Recovered/Resolved]
  - Somnolence [Recovered/Resolved]
  - Agitation [Recovered/Resolved]
  - Dyskinesia [Recovered/Resolved]
  - Hallucinations, mixed [Recovered/Resolved]
  - Hallucination, tactile [Recovered/Resolved]
  - Restlessness [Recovered/Resolved]
  - Akathisia [Recovered/Resolved]
  - Rhabdomyolysis [Recovered/Resolved]
  - Delirium [Recovered/Resolved]
